FAERS Safety Report 8829525 (Version 1)
Quarter: 2012Q4

REPORT INFORMATION
  Report Type: Spontaneous
  Country: US (occurrence: None)
  Receive Date: 20121005
  Receipt Date: 20121005
  Transmission Date: 20130627
  Serious: Yes (Hospitalization)
  Sender: FDA-Public Use
  Company Number: None

PATIENT
  Age: 81 Year
  Sex: Male
  Weight: 68.04 kg

DRUGS (1)
  1. XARELTO (RIVAROXABAN) [Suspect]
     Indication: ATRIAL FIBRILLATION

REACTIONS (4)
  - Nephrolithiasis [None]
  - Calculus ureteric [None]
  - Malaise [None]
  - Depression [None]
